FAERS Safety Report 16517899 (Version 1)
Quarter: 2019Q3

REPORT INFORMATION
  Report Type: Spontaneous
  Country: US (occurrence: US)
  Receive Date: 20190702
  Receipt Date: 20190702
  Transmission Date: 20191004
  Serious: Yes (Other)
  Sender: FDA-Public Use
  Company Number: None

PATIENT
  Age: 73 Year
  Sex: Female
  Weight: 46.8 kg

DRUGS (13)
  1. LETROZOLE. [Concomitant]
     Active Substance: LETROZOLE
  2. HYDROCHLOROTHIAZIDE. [Concomitant]
     Active Substance: HYDROCHLOROTHIAZIDE
  3. CITRACAL [Concomitant]
     Active Substance: CALCIUM CITRATE
  4. VITAMINS NOS [Concomitant]
     Active Substance: VITAMINS
  5. LOSARTAN POTASSIUM. [Concomitant]
     Active Substance: LOSARTAN POTASSIUM
  6. SUPER NATURAL C [Concomitant]
  7. ONCE MONTHLY IBANDRONATE SODIUM TABLETS, 150 MG* [Suspect]
     Active Substance: IBANDRONATE SODIUM
     Indication: BONE LOSS
     Dosage: ?          QUANTITY:3 TABLET(S);OTHER FREQUENCY:ONCE A MONTH;?
     Route: 048
     Dates: start: 20190701, end: 20190702
  8. MULTIVITAMIN [Concomitant]
     Active Substance: VITAMINS
  9. RAW VITAMIN E [Concomitant]
  10. ASPIRIN. [Concomitant]
     Active Substance: ASPIRIN
  11. KIRUNAL [Concomitant]
  12. FELOPIPINE [Concomitant]
  13. MAGNESIUM [Concomitant]
     Active Substance: MAGNESIUM

REACTIONS (26)
  - Headache [None]
  - Joint range of motion decreased [None]
  - Spinal pain [None]
  - Pelvic pain [None]
  - Musculoskeletal pain [None]
  - Pyrexia [None]
  - Joint stiffness [None]
  - Dyspnoea [None]
  - Neck pain [None]
  - Diarrhoea [None]
  - Chills [None]
  - Therapy cessation [None]
  - Pain in extremity [None]
  - Dysstasia [None]
  - Bone pain [None]
  - Influenza like illness [None]
  - Pollakiuria [None]
  - Nausea [None]
  - Hypotension [None]
  - Pain [None]
  - Arthralgia [None]
  - Gait disturbance [None]
  - Decreased appetite [None]
  - Visual impairment [None]
  - Dizziness [None]
  - Joint swelling [None]

NARRATIVE: CASE EVENT DATE: 20190702
